FAERS Safety Report 14094359 (Version 1)
Quarter: 2017Q4

REPORT INFORMATION
  Report Type: Spontaneous
  Country: CH (occurrence: CH)
  Receive Date: 20171016
  Receipt Date: 20171016
  Transmission Date: 20180321
  Serious: Yes (Hospitalization)
  Sender: FDA-Public Use
  Company Number: CH-PFIZER INC-2017440410

PATIENT
  Age: 66 Year
  Sex: Female

DRUGS (8)
  1. TRITTICO [Suspect]
     Active Substance: TRAZODONE HYDROCHLORIDE
     Indication: DEPRESSION
     Dosage: 100 MG, 1X/DAY
     Route: 048
     Dates: end: 20170818
  2. SEROQUEL XR [Suspect]
     Active Substance: QUETIAPINE FUMARATE
     Indication: DEPRESSION
     Dosage: 300 MG, 1X/DAY
     Route: 048
  3. TEMESTA EXPIDET [Suspect]
     Active Substance: LORAZEPAM
     Indication: DEPRESSION
     Dosage: 1 MG, DAILY
     Route: 048
  4. STILNOX [Suspect]
     Active Substance: ZOLPIDEM TARTRATE
     Indication: INSOMNIA
     Dosage: 10 MG, 1X/DAY
     Route: 048
     Dates: start: 20170814, end: 20170818
  5. NEURONTIN [Suspect]
     Active Substance: GABAPENTIN
     Indication: DEPRESSION
     Dosage: 400 MG, 4X/DAY
     Route: 048
  6. CYMBALTA [Suspect]
     Active Substance: DULOXETINE HYDROCHLORIDE
     Indication: DEPRESSION
     Dosage: 120 MG, 1X/DAY
     Route: 048
  7. TEMESTA EXPIDET [Suspect]
     Active Substance: LORAZEPAM
     Indication: INSOMNIA
     Dosage: INCREASED THE USUAL DOSE
     Route: 048
     Dates: start: 20170814, end: 20170818
  8. LETROZOL TEVA [Concomitant]
     Active Substance: LETROZOLE
     Indication: INVASIVE DUCTAL BREAST CARCINOMA
     Dosage: 2.5 MG, DAILY
     Route: 048

REACTIONS (5)
  - Disorientation [Recovering/Resolving]
  - Confusional state [Recovering/Resolving]
  - Incorrect dose administered [Recovered/Resolved]
  - Prescription drug used without a prescription [Recovered/Resolved]
  - Psychomotor skills impaired [Recovering/Resolving]

NARRATIVE: CASE EVENT DATE: 20170814
